FAERS Safety Report 12923287 (Version 1)
Quarter: 2016Q4

REPORT INFORMATION
  Report Type: Spontaneous
  Country: US (occurrence: US)
  Receive Date: 20161109
  Receipt Date: 20161109
  Transmission Date: 20170207
  Serious: Yes (Hospitalization)
  Sender: FDA-Public Use
  Company Number: US-ROCHE-1850610

PATIENT
  Age: 41 Year
  Sex: Female

DRUGS (9)
  1. TRASTUZUMAB [Concomitant]
     Active Substance: TRASTUZUMAB
     Route: 065
     Dates: start: 2014
  2. TAMOXIFEN [Concomitant]
     Active Substance: TAMOXIFEN
     Indication: BREAST CANCER METASTATIC
     Route: 065
  3. CAPECITABINE. [Suspect]
     Active Substance: CAPECITABINE
     Indication: BREAST CANCER METASTATIC
     Route: 065
  4. CAPECITABINE. [Suspect]
     Active Substance: CAPECITABINE
     Route: 065
  5. TRASTUZUMAB [Concomitant]
     Active Substance: TRASTUZUMAB
     Indication: BREAST CANCER METASTATIC
     Route: 065
  6. PERTUZUMAB [Concomitant]
     Active Substance: PERTUZUMAB
     Indication: HEPATIC CANCER METASTATIC
     Route: 065
     Dates: start: 2014
  7. DOCETAXEL. [Concomitant]
     Active Substance: DOCETAXEL
     Indication: HEPATIC CANCER METASTATIC
     Route: 065
     Dates: start: 2014
  8. TRASTUZUMAB EMTANSINE [Concomitant]
     Active Substance: ADO-TRASTUZUMAB EMTANSINE
     Indication: HEPATIC CANCER METASTATIC
     Route: 065
  9. LAPATINIB [Concomitant]
     Active Substance: LAPATINIB
     Route: 065

REACTIONS (1)
  - Arteriospasm coronary [Recovered/Resolved]
